FAERS Safety Report 6756808-0 (Version None)
Quarter: 2010Q2

REPORT INFORMATION
  Report Type: 
  Country: None (occurrence: None)
  Receive Date: 20100604
  Receipt Date: 20100601
  Transmission Date: 20101027
  Serious: Yes (Hospitalization, Other)
  Sender: FDA-Public Use
  Company Number: US-ELI_LILLY_AND_COMPANY-US201005002097

PATIENT
  Sex: Female

DRUGS (12)
  1. HUMALOG MIX 75/25 [Suspect]
     Indication: DIABETES MELLITUS
     Dosage: 25 U, EACH MORNING
  2. HUMALOG MIX 75/25 [Suspect]
     Dosage: 35 U, EACH EVENING
  3. ASPIRIN [Concomitant]
  4. FLUNISOLIDE [Concomitant]
  5. GABAPENTIN [Concomitant]
  6. GLIPIZIDE [Concomitant]
  7. LISINOPRIL [Concomitant]
  8. METFORMIN [Concomitant]
  9. METAPROTERENOL [Concomitant]
  10. PLAVIX [Concomitant]
  11. PRILOSEC [Concomitant]
  12. SIMVASTATIN [Concomitant]

REACTIONS (6)
  - DILATATION ATRIAL [None]
  - MITRAL VALVE CALCIFICATION [None]
  - MITRAL VALVE INCOMPETENCE [None]
  - MYOCARDIAL INFARCTION [None]
  - SICK SINUS SYNDROME [None]
  - SYNCOPE [None]
